FAERS Safety Report 18690186 (Version 10)
Quarter: 2021Q1

REPORT INFORMATION
  Report Type: Report from Study
  Country: BR (occurrence: BR)
  Receive Date: 20201231
  Receipt Date: 20210225
  Transmission Date: 20210419
  Serious: Yes (Life-Threatening, Hospitalization, Other)
  Sender: FDA-Public Use
  Company Number: BR-GILEAD-2020-0511174

PATIENT
  Age: 44 Year
  Sex: Female
  Weight: 146 kg

DRUGS (63)
  1. OXYGEN. [Concomitant]
     Active Substance: OXYGEN
     Dosage: 65 UNK
     Route: 007
     Dates: start: 20201228
  2. OXYGEN. [Concomitant]
     Active Substance: OXYGEN
     Dosage: 8 L
     Route: 055
     Dates: start: 20201220
  3. OXYGEN. [Concomitant]
     Active Substance: OXYGEN
     Dosage: 25 UNK
     Route: 007
     Dates: start: 20210114
  4. DIPYRONE [Concomitant]
     Active Substance: DIPYRONE
     Indication: PYREXIA
     Dosage: PRN
     Dates: start: 20201219
  5. ATENOLOL. [Concomitant]
     Active Substance: ATENOLOL
     Indication: HYPERTENSION
  6. RED BLOOD CELLS [Concomitant]
     Active Substance: HUMAN RED BLOOD CELL
     Indication: ANAEMIA
  7. NORADRENALINE (NORPINEPHRINE) [Concomitant]
     Active Substance: NOREPINEPHRINE
     Indication: HYPOTENSION
     Dosage: UNK
     Dates: start: 20021221, end: 20210117
  8. OXYGEN. [Concomitant]
     Active Substance: OXYGEN
     Dosage: 8 L/MIN
     Route: 007
     Dates: start: 20201220
  9. LOSARTANA POTASSICA [Concomitant]
     Active Substance: LOSARTAN
     Indication: HYPERTENSION
     Dosage: 50 MG, QD
     Dates: start: 20201219, end: 20201220
  10. REMDESIVIR. [Suspect]
     Active Substance: REMDESIVIR
     Indication: COVID-19 PNEUMONIA
     Dosage: 100 ML, QD
     Route: 042
     Dates: start: 20201220
  11. TOCILIZUMAB. [Suspect]
     Active Substance: TOCILIZUMAB
     Indication: COVID-19 PNEUMONIA
     Dosage: UNK
     Route: 042
     Dates: start: 20201220
  12. OXYGEN. [Concomitant]
     Active Substance: OXYGEN
     Dosage: 60 UNK
     Route: 007
     Dates: start: 20201225
  13. OXYGEN. [Concomitant]
     Active Substance: OXYGEN
     Dosage: 50 %
     Route: 007
     Dates: start: 20210102
  14. OXYGEN. [Concomitant]
     Active Substance: OXYGEN
     Dosage: 60 UNK
     Route: 007
     Dates: start: 20210101
  15. OXYGEN. [Concomitant]
     Active Substance: OXYGEN
     Dosage: 100 UNK
     Route: 007
     Dates: start: 20201221
  16. OXYGEN. [Concomitant]
     Active Substance: OXYGEN
     Dosage: 25 UNK
     Route: 007
     Dates: start: 20210113
  17. OXYGEN. [Concomitant]
     Active Substance: OXYGEN
     Dosage: 21 UNK
     Route: 007
     Dates: start: 20210116
  18. OXYGEN. [Concomitant]
     Active Substance: OXYGEN
     Dosage: 21 UNK
     Route: 007
     Dates: start: 20210115
  19. DEXMEDETOMIDINE. [Concomitant]
     Active Substance: DEXMEDETOMIDINE
     Indication: ANXIETY
     Dosage: DRIPPING
     Dates: start: 20201220
  20. DEXAMETHASONE. [Concomitant]
     Active Substance: DEXAMETHASONE
     Indication: COVID-19 PNEUMONIA
     Dosage: 6 MG, QD
     Dates: start: 20201220
  21. ENOXAPARIN [Concomitant]
     Active Substance: ENOXAPARIN
     Indication: DEEP VEIN THROMBOSIS
     Dosage: 40 MG, QD
     Dates: start: 20201219
  22. ETOMIDATE. [Concomitant]
     Active Substance: ETOMIDATE
     Indication: ENDOTRACHEAL INTUBATION
     Dosage: 2 ML
     Dates: start: 20201220, end: 20201220
  23. OXYGEN. [Concomitant]
     Active Substance: OXYGEN
     Dosage: 9 L
     Route: 055
     Dates: start: 20201220
  24. OXYGEN. [Concomitant]
     Active Substance: OXYGEN
     Dosage: 100 UNK
     Route: 007
     Dates: start: 20201222
  25. OXYGEN. [Concomitant]
     Active Substance: OXYGEN
     Dosage: 75 UNK
     Route: 007
     Dates: start: 20201227
  26. OXYGEN. [Concomitant]
     Active Substance: OXYGEN
     Dosage: 50 UNK
     Route: 007
     Dates: start: 20200103
  27. OXYGEN. [Concomitant]
     Active Substance: OXYGEN
     Dosage: 35 UNK
     Route: 007
     Dates: start: 20210108
  28. OXYGEN. [Concomitant]
     Active Substance: OXYGEN
     Dosage: 60 UNK
     Route: 007
     Dates: start: 20201225
  29. OXYGEN. [Concomitant]
     Active Substance: OXYGEN
     Dosage: 100 UNK
     Route: 007
     Dates: start: 20201220
  30. OXYGEN. [Concomitant]
     Active Substance: OXYGEN
     Dosage: 25 UNK
     Route: 007
     Dates: start: 20210113
  31. ATENOLOL. [Concomitant]
     Active Substance: ATENOLOL
     Indication: HYPERTENSION
     Dosage: 50 MG, QD
     Dates: start: 20201219, end: 20201220
  32. CISATRACURIUM. [Concomitant]
     Active Substance: CISATRACURIUM
     Indication: SEDATION
  33. PROPOFOL. [Concomitant]
     Active Substance: PROPOFOL
     Indication: ENDOTRACHEAL INTUBATION
  34. FUROSEMIDE. [Concomitant]
     Active Substance: FUROSEMIDE
     Indication: HYPERTENSION
  35. OXYGEN. [Concomitant]
     Active Substance: OXYGEN
     Dosage: 13 L
     Route: 055
     Dates: start: 20201220
  36. OXYGEN. [Concomitant]
     Active Substance: OXYGEN
     Dosage: 55 UNK
     Route: 007
     Dates: start: 20201226
  37. OXYGEN. [Concomitant]
     Active Substance: OXYGEN
     Dosage: 55 UNK
     Route: 007
     Dates: start: 20201226
  38. OXYGEN. [Concomitant]
     Active Substance: OXYGEN
     Dosage: 100 %
     Route: 007
     Dates: start: 20201221
  39. OXYGEN. [Concomitant]
     Active Substance: OXYGEN
     Dosage: 25 UNK
     Route: 007
     Dates: start: 20210114
  40. OXYGEN. [Concomitant]
     Active Substance: OXYGEN
     Dosage: 21 UNK
     Route: 007
     Dates: start: 20210117
  41. SUXAMETHONIUM [Concomitant]
     Active Substance: SUCCINYLCHOLINE
     Indication: ENDOTRACHEAL INTUBATION
  42. OXYGEN. [Concomitant]
     Active Substance: OXYGEN
     Dosage: 100 %
     Route: 007
     Dates: start: 20201224
  43. OXYGEN. [Concomitant]
     Active Substance: OXYGEN
     Dosage: 50 %
     Route: 007
     Dates: start: 20201229
  44. OXYGEN. [Concomitant]
     Active Substance: OXYGEN
     Dosage: 50 UNK
     Route: 007
     Dates: start: 20201230
  45. OXYGEN. [Concomitant]
     Active Substance: OXYGEN
     Dosage: 50 UNK
     Route: 007
     Dates: start: 20201231
  46. OXYGEN. [Concomitant]
     Active Substance: OXYGEN
     Dosage: 50 UNK
     Route: 007
     Dates: start: 20201230
  47. OMEPRAZOLE. [Concomitant]
     Active Substance: OMEPRAZOLE
     Dosage: 40 MG
     Dates: start: 20201219
  48. LOSARTANA POTASSICA [Concomitant]
     Active Substance: LOSARTAN
     Indication: HYPERTENSION
  49. OXYGEN. [Concomitant]
     Active Substance: OXYGEN
     Dosage: 100 UNK
     Route: 007
     Dates: start: 20201221
  50. OXYGEN. [Concomitant]
     Active Substance: OXYGEN
     Dosage: 100 UNK
     Route: 007
     Dates: start: 20201221
  51. OXYGEN. [Concomitant]
     Active Substance: OXYGEN
     Dosage: 75 UNK
     Route: 007
     Dates: start: 20201227
  52. POTASSIUM CHLORIDE. [Concomitant]
     Active Substance: POTASSIUM CHLORIDE
     Indication: HYPOKALAEMIA
     Dosage: 10 %
     Dates: start: 20201220
  53. AMLODIPINE [Concomitant]
     Active Substance: AMLODIPINE BESYLATE
     Indication: HYPERTENSION
  54. HYPROMELLOSE [Concomitant]
     Active Substance: HYPROMELLOSES
  55. MIDAZOLAM. [Concomitant]
     Active Substance: MIDAZOLAM
     Indication: SEDATION
  56. OXYGEN. [Concomitant]
     Active Substance: OXYGEN
     Indication: OXYGEN THERAPY
     Dosage: 55 %
     Route: 007
     Dates: start: 20201223
  57. OXYGEN. [Concomitant]
     Active Substance: OXYGEN
     Dosage: 100 UNK
     Route: 007
     Dates: start: 20201220
  58. OXYGEN. [Concomitant]
     Active Substance: OXYGEN
     Dosage: 50 UNK
     Route: 007
     Dates: start: 20201231
  59. OXYGEN. [Concomitant]
     Active Substance: OXYGEN
     Dosage: 21 UNK
     Route: 007
     Dates: start: 20210115
  60. AMLODIPINE [Concomitant]
     Active Substance: AMLODIPINE BESYLATE
     Indication: HYPERTENSION
     Dosage: 5 MG, QD
     Dates: start: 20201219, end: 20201220
  61. FLUOXETINE [Concomitant]
     Active Substance: FLUOXETINE HYDROCHLORIDE
     Indication: DEPRESSION
     Dosage: 20 MG, QD
     Dates: start: 20201219, end: 20201220
  62. FENTANYL. [Concomitant]
     Active Substance: FENTANYL
     Indication: ENDOTRACHEAL INTUBATION
     Dosage: 1 ML
     Dates: start: 20201220, end: 20201220
  63. BROMOPRIDE [Concomitant]
     Active Substance: BROMOPRIDE

REACTIONS (2)
  - Renal impairment [Not Recovered/Not Resolved]
  - Septic shock [Recovered/Resolved]

NARRATIVE: CASE EVENT DATE: 20201226
